FAERS Safety Report 6743148-9 (Version None)
Quarter: 2010Q2

REPORT INFORMATION
  Report Type: 
  Country: None (occurrence: None)
  Receive Date: 20100525
  Receipt Date: 20100511
  Transmission Date: 20101027
  Serious: Yes (Life-Threatening, Hospitalization)
  Sender: FDA-Public Use
  Company Number: 2010AL002845

PATIENT
  Age: 59 Year
  Sex: Female

DRUGS (6)
  1. SPIRONOLACTONE [Suspect]
     Indication: RENAL FAILURE CHRONIC
     Dosage: 50 MG; PO
     Route: 048
     Dates: start: 20100107
  2. RAMIPRIL [Suspect]
     Indication: RENAL FAILURE CHRONIC
     Dosage: 50 MG; PO
     Route: 048
     Dates: start: 20100107
  3. HYDROCHLOROTHIAZIDE [Suspect]
     Indication: HYPERTENSION
     Dosage: 25 MG; PO
     Route: 048
     Dates: start: 20091201, end: 20100221
  4. BISOPROLOL [Concomitant]
  5. TORASEMIDE [Concomitant]
  6. SIMVASTATIN [Concomitant]

REACTIONS (6)
  - ACUTE MYOCARDIAL INFARCTION [None]
  - CARDIAC FAILURE [None]
  - DEHYDRATION [None]
  - DIARRHOEA [None]
  - RENAL FAILURE ACUTE [None]
  - VASCULAR INSUFFICIENCY [None]
